FAERS Safety Report 10154024 (Version 1)
Quarter: 2014Q2

REPORT INFORMATION
  Report Type: Spontaneous
  Country: FR (occurrence: FR)
  Receive Date: 20140506
  Receipt Date: 20140506
  Transmission Date: 20141212
  Serious: Yes (Congenital Anomaly)
  Sender: FDA-Public Use
  Company Number: FR-UCBSA-120000

PATIENT
  Sex: 0

DRUGS (5)
  1. KEPPRA [Suspect]
     Dosage: 500 MG, 1.5 G/DAY
     Route: 064
     Dates: start: 2013, end: 20130904
  2. KEPPRA [Suspect]
     Dosage: 500 MG, 1G/DAY
     Route: 064
     Dates: start: 201309, end: 2014
  3. LAMICTAL [Suspect]
     Dosage: 150 MG/DAY
     Route: 064
     Dates: start: 2013, end: 201309
  4. LAMICTAL [Suspect]
     Dosage: 200 MG/DAY
     Route: 064
     Dates: start: 201309, end: 201401
  5. LAMICTAL [Suspect]
     Dosage: 300 MG/DAY
     Route: 064
     Dates: start: 201401, end: 2014

REACTIONS (3)
  - Cerebral ventricle dilatation [Unknown]
  - Congenital central nervous system anomaly [Unknown]
  - Foetal exposure during pregnancy [Recovered/Resolved]
